FAERS Safety Report 12488740 (Version 10)
Quarter: 2018Q3

REPORT INFORMATION
  Report Type: Spontaneous
  Country: US (occurrence: US)
  Receive Date: 20160622
  Receipt Date: 20180808
  Transmission Date: 20181010
  Serious: Yes (Other)
  Sender: FDA-Public Use
  Company Number: US-INCYTE CORPORATION-2016IN003560

PATIENT

DRUGS (3)
  1. JAKAFI [Suspect]
     Active Substance: RUXOLITINIB
     Indication: MYELOFIBROSIS
     Dosage: 10 MG, BID
     Route: 048
     Dates: start: 20160530, end: 201712
  2. POTASSIUM [Concomitant]
     Active Substance: POTASSIUM
     Indication: PRODUCT USED FOR UNKNOWN INDICATION
     Dosage: UNK
     Route: 065
  3. JAKAFI [Suspect]
     Active Substance: RUXOLITINIB
     Dosage: 5 MG, BID
     Route: 048
     Dates: start: 20171221

REACTIONS (27)
  - Fatigue [Unknown]
  - Contusion [Unknown]
  - Flatulence [Unknown]
  - Influenza like illness [Unknown]
  - Feeding disorder [Unknown]
  - Haemoglobin decreased [Unknown]
  - Blood count abnormal [Unknown]
  - Diarrhoea [Unknown]
  - Chills [Unknown]
  - Platelet count decreased [Unknown]
  - Exercise tolerance decreased [Unknown]
  - Abdominal distension [Unknown]
  - Prostatic disorder [Unknown]
  - Cerebral atrophy [Unknown]
  - Mass [Unknown]
  - White blood cell count increased [Unknown]
  - Abdominal pain [Unknown]
  - Increased tendency to bruise [Unknown]
  - Pyrexia [Unknown]
  - Epistaxis [Unknown]
  - Pruritus [Not Recovered/Not Resolved]
  - Urticaria [Not Recovered/Not Resolved]
  - Vomiting [Unknown]
  - Axillary mass [Unknown]
  - Nausea [Unknown]
  - Yellow skin [Unknown]
  - Haematocrit decreased [Unknown]

NARRATIVE: CASE EVENT DATE: 20160530
